FAERS Safety Report 11620548 (Version 1)
Quarter: 2015Q4

REPORT INFORMATION
  Report Type: Spontaneous
  Country: PL (occurrence: PL)
  Receive Date: 20151012
  Receipt Date: 20151012
  Transmission Date: 20160304
  Serious: Yes (Other)
  Sender: FDA-Public Use
  Company Number: PHHY2015PL120429

PATIENT
  Age: 49 Year
  Sex: Male

DRUGS (1)
  1. SANDOSTATIN LAR DEPOT [Suspect]
     Active Substance: OCTREOTIDE ACETATE
     Indication: PRODUCT USED FOR UNKNOWN INDICATION
     Route: 065

REACTIONS (9)
  - Insulin-like growth factor increased [Unknown]
  - Hyperglycaemia [Unknown]
  - Benign prostatic hyperplasia [Unknown]
  - Hypothyroidism [Unknown]
  - Hypertension [Unknown]
  - Metastatic malignant melanoma [Unknown]
  - Mitral valve incompetence [Unknown]
  - Ventricular hypertrophy [Unknown]
  - Breast mass [Unknown]
